FAERS Safety Report 6334586-7 (Version None)
Quarter: 2009Q3

REPORT INFORMATION
  Report Type: 
  Country: None (occurrence: None)
  Receive Date: 20090827
  Receipt Date: 20090818
  Transmission Date: 20100115
  Serious: Yes (Other)
  Sender: FDA-Public Use
  Company Number: 2009-03357

PATIENT
  Age: 51 Year
  Sex: Female
  Weight: 58.2 kg

DRUGS (7)
  1. VELCADE           (BORTEZOMIB) INJECTION [Suspect]
     Indication: MANTLE CELL LYMPHOMA
     Dosage: 1.3 MG/M2, UNK, IV BOLUS
     Route: 040
     Dates: start: 20080414
  2. RITUXIMAB       INJECTION, 375MG/M2 [Suspect]
     Indication: MANTLE CELL LYMPHOMA
     Dosage: 375 MG/M2, UNK, INTRAVENOUS
     Route: 042
     Dates: start: 20080414
  3. CYCLOPHOSPHAMIDE [Suspect]
     Indication: MANTLE CELL LYMPHOMA
     Dosage: 300 MG/M2, UNK, INTRAVENOUS
     Route: 042
     Dates: start: 20080414
  4. DOXORUBICIN HCL [Suspect]
     Indication: MANTLE CELL LYMPHOMA
     Dosage: 25 MG/M2, UNK, INTRAVENOUS
     Route: 042
     Dates: start: 20080414
  5. VINCRISTINE [Suspect]
     Indication: MANTLE CELL LYMPHOMA
     Dosage: 1 MG, UNK, INTRAVENOUS
     Route: 042
     Dates: start: 20080414
  6. DEXAMETHASONE TAB [Suspect]
     Indication: MANTLE CELL LYMPHOMA
     Dosage: 40 MG, UNK, UNK
     Dates: start: 20080414
  7. NEULASTA [Suspect]
     Indication: MANTLE CELL LYMPHOMA
     Dosage: 6 MG, UNK, SUBCUTANEOUS
     Route: 058
     Dates: start: 20080414

REACTIONS (9)
  - ALOPECIA [None]
  - BACTERAEMIA [None]
  - HAEMATOCRIT DECREASED [None]
  - HAEMOGLOBIN DECREASED [None]
  - NEUTROPHIL COUNT DECREASED [None]
  - ORAL PAIN [None]
  - RED BLOOD CELL COUNT DECREASED [None]
  - TOOTH ABSCESS [None]
  - TOOTH INFECTION [None]
